FAERS Safety Report 12644600 (Version 6)
Quarter: 2018Q2

REPORT INFORMATION
  Report Type: Report from Study
  Country: US (occurrence: US)
  Receive Date: 20160811
  Receipt Date: 20180622
  Transmission Date: 20180711
  Serious: Yes (Other)
  Sender: FDA-Public Use
  Company Number: US-BAYER-2016-124181

PATIENT
  Age: 52 Year
  Sex: Female

DRUGS (2)
  1. STIVARGA [Suspect]
     Active Substance: REGORAFENIB
     Indication: COLON CANCER
     Dosage: DAILY DOSE 80 MG
     Route: 048
  2. STIVARGA [Suspect]
     Active Substance: REGORAFENIB
     Indication: COLON CANCER
     Dosage: 120 MG, QD (21 DAYS ON 7 DAYS OFF)
     Route: 048
     Dates: start: 20160601

REACTIONS (12)
  - Carcinoembryonic antigen increased [None]
  - Oral pain [None]
  - Skin exfoliation [None]
  - Skin fissures [None]
  - Skin exfoliation [Recovering/Resolving]
  - Nausea [None]
  - Toxic skin eruption [None]
  - Surgery [None]
  - Hyperaesthesia [None]
  - Dysgeusia [None]
  - Neuropathy peripheral [None]
  - Diarrhoea [None]

NARRATIVE: CASE EVENT DATE: 2016
